FAERS Safety Report 9913563 (Version 1)
Quarter: 2014Q1

REPORT INFORMATION
  Report Type: Spontaneous
  Country: US (occurrence: None)
  Receive Date: 20140218
  Receipt Date: 20140218
  Transmission Date: 20141002
  Serious: No
  Sender: FDA-Public Use
  Company Number: None

PATIENT
  Age: 83 Year
  Sex: Male

DRUGS (1)
  1. IMBRUVICA 140 MG CAP, 3 CAPS ONCE DAILY JANSSEN [Suspect]
     Dosage: TAKE 3 CAPS DAILY
     Route: 048
     Dates: start: 20131206

REACTIONS (1)
  - Pneumonia [None]
